FAERS Safety Report 8322688-5 (Version None)
Quarter: 2012Q2

REPORT INFORMATION
  Report Type: 
  Country: None (occurrence: None)
  Receive Date: 20120430
  Receipt Date: 20120425
  Transmission Date: 20120825
  Serious: Yes (Other)
  Sender: FDA-Public Use
  Company Number: JP-MERCK-1203USA01717

PATIENT
  Age: 70 Year
  Sex: Female

DRUGS (4)
  1. VITAMIN B12 [Concomitant]
     Route: 048
     Dates: start: 20120206, end: 20120215
  2. PEPCID RPD [Suspect]
     Route: 048
     Dates: start: 20120206, end: 20120215
  3. SELTOUCH [Concomitant]
     Route: 065
     Dates: start: 20120206, end: 20120215
  4. CELEBREX [Suspect]
     Route: 048
     Dates: start: 20120206, end: 20120215

REACTIONS (1)
  - DRUG ERUPTION [None]
